FAERS Safety Report 16710897 (Version 1)
Quarter: 2019Q3

REPORT INFORMATION
  Report Type: Spontaneous
  Country: DE (occurrence: DE)
  Receive Date: 20190816
  Receipt Date: 20190816
  Transmission Date: 20191004
  Serious: Yes (Hospitalization)
  Sender: FDA-Public Use
  Company Number: DE-PFIZER INC-2019346983

PATIENT
  Age: 46 Year
  Sex: Male
  Weight: 90 kg

DRUGS (4)
  1. ACETYLSALICYLSAEURE [Suspect]
     Active Substance: ASPIRIN
     Dosage: 100 MG,  (3X/WEEKLY)
     Route: 048
  2. IBUPROFEN. [Suspect]
     Active Substance: IBUPROFEN
     Dosage: 400 MG, (3X/WEEKLY)
     Route: 048
  3. RIZATRIPTAN. [Concomitant]
     Active Substance: RIZATRIPTAN
     Dosage: 10 MG, UNK (3X/WEEKLY)
     Route: 048
  4. PANTOPRAZOL [PANTOPRAZOLE] [Concomitant]
     Active Substance: PANTOPRAZOLE
     Dosage: 40 MG, UNK (1-0-0)
     Route: 048

REACTIONS (3)
  - Upper gastrointestinal haemorrhage [Unknown]
  - Haematemesis [Unknown]
  - Product prescribing error [Unknown]

NARRATIVE: CASE EVENT DATE: 20180109
